FAERS Safety Report 11786422 (Version 1)
Quarter: 2015Q4

REPORT INFORMATION
  Report Type: Spontaneous
  Country: US (occurrence: None)
  Receive Date: 20151125
  Receipt Date: 20151125
  Transmission Date: 20160305
  Serious: No
  Sender: FDA-Public Use
  Company Number: None

PATIENT
  Age: 55 Year
  Sex: Female

DRUGS (1)
  1. HUMIRA [Suspect]
     Active Substance: ADALIMUMAB
     Indication: PSORIASIS
     Dosage: HUMIRA PEN 40MG/0.8ML 40MG EVERY 2 WEEKS SUBCUTANEOUSLY
     Route: 058
     Dates: start: 20140902, end: 20151123

REACTIONS (2)
  - Swelling [None]
  - Rash [None]

NARRATIVE: CASE EVENT DATE: 20151123
